FAERS Safety Report 14641091 (Version 2)
Quarter: 2018Q1

REPORT INFORMATION
  Report Type: Spontaneous
  Country: ES (occurrence: ES)
  Receive Date: 20180315
  Receipt Date: 20180320
  Transmission Date: 20180509
  Serious: Yes (Other)
  Sender: FDA-Public Use
  Company Number: ES-PFIZER INC-2018106014

PATIENT
  Age: 89 Year
  Sex: Female

DRUGS (3)
  1. PANTECTA [Suspect]
     Active Substance: PANTOPRAZOLE SODIUM
     Dosage: 40 MG, QD
     Route: 048
     Dates: start: 20171023, end: 20171023
  2. BESITRAN [Interacting]
     Active Substance: SERTRALINE HYDROCHLORIDE
     Dosage: 20 MG, QD
     Route: 048
     Dates: start: 20171023, end: 20171023
  3. CORONUR [Interacting]
     Active Substance: ISOSORBIDE MONONITRATE
     Dosage: 20 MG, QD
     Route: 048
     Dates: end: 20171023

REACTIONS (4)
  - Drug interaction [Unknown]
  - Hypotension [Unknown]
  - Hyperhidrosis [Unknown]
  - Wrong patient received medication [Unknown]

NARRATIVE: CASE EVENT DATE: 20171023
